FAERS Safety Report 8920952 (Version 2)
Quarter: 2012Q4

REPORT INFORMATION
  Report Type: 
  Country: US (occurrence: US)
  Receive Date: 20121123
  Receipt Date: 20121213
  Transmission Date: 20130627
  Serious: Yes (Death, Hospitalization)
  Sender: FDA-Public Use
  Company Number: US-009507513-1211USA008765

PATIENT
  Age: 50 None
  Sex: Male

DRUGS (7)
  1. EMEND [Suspect]
     Indication: NAUSEA
     Dosage: 150 mg, q3w
     Route: 042
     Dates: start: 20120813, end: 20121016
  2. EMEND [Suspect]
     Indication: VOMITING
  3. EMEND [Suspect]
     Indication: LUNG NEOPLASM MALIGNANT
  4. CARBOPLATIN [Concomitant]
  5. ETOPOSIDE [Concomitant]
  6. EULEXIN [Concomitant]
  7. ALOXI [Concomitant]

REACTIONS (3)
  - Lung neoplasm malignant [Fatal]
  - Arthralgia [Unknown]
  - Joint stiffness [Unknown]
